FAERS Safety Report 14604944 (Version 2)
Quarter: 2018Q1

REPORT INFORMATION
  Report Type: Spontaneous
  Country: FR (occurrence: FR)
  Receive Date: 20180306
  Receipt Date: 20180307
  Transmission Date: 20180509
  Serious: Yes (Life-Threatening)
  Sender: FDA-Public Use
  Company Number: FR-SA-2018SA062074

PATIENT
  Age: 51 Year
  Sex: Male

DRUGS (2)
  1. NEORAL [Suspect]
     Active Substance: CYCLOSPORINE
     Indication: LIVER TRANSPLANT
     Route: 048
     Dates: start: 201802
  2. RIFADINE [Suspect]
     Active Substance: RIFAMPIN
     Indication: PRODUCT USED FOR UNKNOWN INDICATION
     Route: 048
     Dates: start: 20171124, end: 20180215

REACTIONS (3)
  - Underdose [Unknown]
  - Drug interaction [Recovered/Resolved]
  - Liver transplant rejection [Not Recovered/Not Resolved]

NARRATIVE: CASE EVENT DATE: 2018
